FAERS Safety Report 6022131-5 (Version None)
Quarter: 2008Q4

REPORT INFORMATION
  Report Type: 
  Country: None (occurrence: None)
  Receive Date: 20081223
  Receipt Date: 20081202
  Transmission Date: 20090506
  Serious: Yes (Other)
  Sender: FDA-Public Use
  Company Number: 100421

PATIENT
  Age: 44 Year
  Sex: Male
  Weight: 93.441 kg

DRUGS (1)
  1. NITETIME FREE CHERRY 6 HOUR LIQUID [Suspect]
     Dosage: 2 TBSP/ X2/ ORAL
     Route: 048
     Dates: start: 20080918, end: 20080918

REACTIONS (11)
  - ARTHRALGIA [None]
  - ASTHENIA [None]
  - DYSPHAGIA [None]
  - EPISTAXIS [None]
  - FATIGUE [None]
  - PAIN [None]
  - PYREXIA [None]
  - SKIN DISORDER [None]
  - SKIN EXFOLIATION [None]
  - TENDERNESS [None]
  - TONGUE DISORDER [None]
